FAERS Safety Report 6125476-3 (Version None)
Quarter: 2009Q1

REPORT INFORMATION
  Report Type: 
  Country: None (occurrence: None)
  Receive Date: 20090318
  Receipt Date: 20090313
  Transmission Date: 20090719
  Serious: Yes (Hospitalization)
  Sender: FDA-Public Use
  Company Number: GXKR2009DE03161

PATIENT
  Age: 80 Year
  Sex: Female
  Weight: 95 kg

DRUGS (9)
  1. ASPIRIN [Suspect]
     Dosage: 100 MG,QD, ORAL
     Route: 048
     Dates: start: 20040101
  2. ACTRAPID HUMAN (INSULIN HUMAN) [Concomitant]
  3. AMLODIPINE [Concomitant]
  4. CITALOPRAM HYDROBROMIDE [Concomitant]
  5. DIOVAN HCT [Concomitant]
  6. METOPROLOL TARTRATE [Concomitant]
  7. NEXIUM [Concomitant]
  8. PROTAPHAN (INSULIN ISOPHANE, HUMAN BIOSYNTHETIC) [Concomitant]
  9. XIPAMIDE (XIPAMIDE) [Concomitant]

REACTIONS (1)
  - EPISTAXIS [None]
